FAERS Safety Report 24112020 (Version 1)
Quarter: 2024Q3

REPORT INFORMATION
  Report Type: Report from Study
  Country: EU (occurrence: EU)
  Receive Date: 20240719
  Receipt Date: 20240719
  Transmission Date: 20241017
  Serious: Yes (Death)
  Sender: BAUSCH AND LOMB
  Company Number: PT-AMGEN-PRTNI2024113982

PATIENT
  Age: 69 Year
  Sex: Female

DRUGS (2)
  1. DEXAMETHASONE SODIUM PHOSPHATE [Suspect]
     Active Substance: DEXAMETHASONE PHOSPHATE\DEXAMETHASONE SODIUM PHOSPHATE
     Indication: Plasma cell myeloma
     Dosage: UNK
     Route: 065
     Dates: start: 20160201
  2. CARFILZOMIB [Suspect]
     Active Substance: CARFILZOMIB
     Indication: Plasma cell myeloma
     Dosage: UNK
     Route: 042
     Dates: start: 20160201, end: 20240129

REACTIONS (2)
  - Respiratory tract infection [Fatal]
  - Pneumonia [Fatal]

NARRATIVE: CASE EVENT DATE: 20240301
